FAERS Safety Report 6202750-3 (Version None)
Quarter: 2009Q2

REPORT INFORMATION
  Report Type: 
  Country: None (occurrence: None)
  Receive Date: 20090526
  Receipt Date: 20090511
  Transmission Date: 20091009
  Serious: Yes (Hospitalization, Other)
  Sender: FDA-Public Use
  Company Number: US-GENENTECH-283492

PATIENT

DRUGS (4)
  1. MABTHERA [Suspect]
     Indication: CHRONIC LYMPHOCYTIC LEUKAEMIA
     Dosage: 375 MG/M2, Q2W
     Route: 042
  2. ALEMTUZUMAB [Suspect]
     Indication: CHRONIC LYMPHOCYTIC LEUKAEMIA
     Dosage: 3 MG, UNK
     Route: 058
  3. PHENCYCLIDINE HYDROCHLORIDE [Concomitant]
     Indication: PROPHYLAXIS
  4. HERPES ZOSTER VACCINE NOS [Concomitant]
     Indication: PROPHYLAXIS

REACTIONS (11)
  - ADENOVIRUS INFECTION [None]
  - ANAEMIA HAEMOLYTIC AUTOIMMUNE [None]
  - CLOSTRIDIAL INFECTION [None]
  - CYTOMEGALOVIRUS INFECTION [None]
  - DISEASE PROGRESSION [None]
  - FEBRILE NEUTROPENIA [None]
  - LYMPHADENOPATHY [None]
  - LYMPHOPENIA [None]
  - MALAISE [None]
  - NEUTROPENIA [None]
  - THROMBOCYTOPENIA [None]
